FAERS Safety Report 7293557-7 (Version None)
Quarter: 2011Q1

REPORT INFORMATION
  Report Type: 
  Country: None (occurrence: None)
  Receive Date: 20110215
  Receipt Date: 20110211
  Transmission Date: 20110831
  Serious: Yes (Death)
  Sender: FDA-Public Use
  Company Number: NO-B.I. PHARMACEUTICALS,INC./RIDGEFIELD-2011-SW-00055NO

PATIENT
  Sex: Female

DRUGS (6)
  1. ALBYL-E [Suspect]
     Dosage: 75 MG
     Route: 048
  2. AFIPRAN [Concomitant]
     Dosage: 30 MG
  3. TRAMADOL HCL [Concomitant]
     Dosage: 150 MG
  4. ACETAMINOPHEN [Concomitant]
     Dosage: 4 G
  5. IMOVANE [Concomitant]
  6. MOBIC [Suspect]
     Indication: ARTHRALGIA
     Dosage: 7.5 MG

REACTIONS (2)
  - DEATH [None]
  - GASTRIC ULCER [None]
